FAERS Safety Report 7525218-0 (Version None)
Quarter: 2011Q2

REPORT INFORMATION
  Report Type: 
  Country: None (occurrence: None)
  Receive Date: 20110526
  Receipt Date: 20110516
  Transmission Date: 20111010
  Serious: Yes (Hospitalization)
  Sender: FDA-Public Use
  Company Number: GER/GER/09/0008814

PATIENT
  Age: 69 Year
  Sex: Female

DRUGS (5)
  1. ASPIRIN [Concomitant]
  2. RAMIPRIL [Suspect]
     Indication: HYPERTENSION
     Dosage: 5 MG, 2 IN 1 D, ORAL
     Route: 048
  3. METOPROLOL SUCCINATE [Suspect]
     Indication: HYPERTENSION
     Dosage: 3 IN 1 D, ORAL
     Route: 048
     Dates: start: 20090101
  4. DOXAZOSIN MESYLATE [Suspect]
     Indication: HYPERTENSION
     Dosage: 2 MG, 1 IN 1 D, ORAL
     Route: 048
  5. AMLODIPINE BESYLATE AND VALSARTAN [Suspect]
     Indication: HYPERTENSION
     Dosage: 1 DOSAGE FORMS, 1 IN 1 D, ORAL
     Route: 048

REACTIONS (12)
  - SUPRAVENTRICULAR EXTRASYSTOLES [None]
  - AORTIC VALVE SCLEROSIS [None]
  - ELECTROCARDIOGRAM T WAVE INVERSION [None]
  - AORTIC VALVE INCOMPETENCE [None]
  - SINUS BRADYCARDIA [None]
  - VENTRICULAR EXTRASYSTOLES [None]
  - SYNCOPE [None]
  - HYPOTENSION [None]
  - DRUG INTERACTION [None]
  - SYSTOLIC HYPERTENSION [None]
  - ELECTROCARDIOGRAM ST SEGMENT DEPRESSION [None]
  - MITRAL VALVE DISEASE [None]
